FAERS Safety Report 7534821-3 (Version None)
Quarter: 2011Q2

REPORT INFORMATION
  Report Type: 
  Country: None (occurrence: None)
  Receive Date: 20110609
  Receipt Date: 20080916
  Transmission Date: 20111010
  Serious: Yes (Death, Hospitalization)
  Sender: FDA-Public Use
  Company Number: PHHY2008GB18506

PATIENT
  Sex: Male

DRUGS (9)
  1. CLOZAPINE [Suspect]
     Indication: SCHIZOPHRENIA
     Route: 048
     Dates: start: 20020204
  2. FERROUS SULFATE TAB [Concomitant]
     Indication: IRON DEFICIENCY ANAEMIA
     Dosage: 200 MG/DAY
     Route: 048
  3. ALFUZOSIN HCL [Concomitant]
     Indication: BENIGN PROSTATIC HYPERPLASIA
     Dosage: 2.5 MG/DAY
     Route: 048
  4. FUROSEMIDE [Concomitant]
     Indication: OEDEMA PERIPHERAL
     Dosage: 20 MG/DAY
     Route: 048
  5. GAVISCON [Concomitant]
     Indication: REFLUX OESOPHAGITIS
     Dosage: 10 ML/DAY
     Route: 048
  6. LACTULOSE [Concomitant]
     Indication: CONSTIPATION
     Dosage: 10 ML/DAY
     Route: 048
  7. LANSOPRAZOLE [Concomitant]
     Indication: REFLUX OESOPHAGITIS
     Dosage: 30 MG/DAY
  8. FINASTERIDE [Concomitant]
     Indication: BENIGN PROSTATIC HYPERPLASIA
     Dosage: 5 MG/DAY
     Route: 048
  9. FLUOXETINE HCL [Concomitant]
     Indication: DEPRESSED MOOD
     Dosage: 20 MG/DAY
     Route: 048

REACTIONS (1)
  - LUNG NEOPLASM MALIGNANT [None]
